FAERS Safety Report 8192676-0 (Version None)
Quarter: 2012Q1

REPORT INFORMATION
  Report Type: 
  Country: None (occurrence: None)
  Receive Date: 20120308
  Receipt Date: 20120228
  Transmission Date: 20120608
  Serious: Yes (Other)
  Sender: FDA-Public Use
  Company Number: FR-JNJFOC-20120300283

PATIENT
  Age: 13 Year
  Sex: Female

DRUGS (2)
  1. RISPERDAL [Suspect]
     Route: 048
     Dates: end: 20120218
  2. RISPERDAL [Suspect]
     Indication: MANIA
     Dosage: 0.5-0.5-1MG
     Route: 048
     Dates: start: 20120214

REACTIONS (2)
  - NEUROLEPTIC MALIGNANT SYNDROME [None]
  - LIVER DISORDER [None]
